FAERS Safety Report 6883239-5 (Version None)
Quarter: 2010Q3

REPORT INFORMATION
  Report Type: 
  Country: None (occurrence: None)
  Receive Date: 20100729
  Receipt Date: 20100723
  Transmission Date: 20110219
  Serious: Yes (Hospitalization, Other)
  Sender: FDA-Public Use
  Company Number: AU-MPIJNJ-2010-00849

PATIENT

DRUGS (3)
  1. VELCADE [Suspect]
     Indication: MULTIPLE MYELOMA
     Dosage: 1.3 MG/M2, UNK
     Route: 042
     Dates: start: 20091201, end: 20091208
  2. DEXAMETHASONE [Suspect]
     Indication: MULTIPLE MYELOMA
     Dosage: 20 MG, UNK
     Route: 048
     Dates: start: 20091201, end: 20091212
  3. DOXORUBICIN HCL [Suspect]
     Indication: MULTIPLE MYELOMA
     Dosage: 20 MG/M2, UNK
     Route: 042
     Dates: start: 20091201, end: 20091204

REACTIONS (2)
  - CARDIOMYOPATHY [None]
  - RESPIRATORY FAILURE [None]
